FAERS Safety Report 9664346 (Version 2)
Quarter: 2013Q4

REPORT INFORMATION
  Report Type: Spontaneous
  Country: MX (occurrence: MX)
  Receive Date: 20131101
  Receipt Date: 20131101
  Transmission Date: 20140711
  Serious: Yes (Disabling)
  Sender: FDA-Public Use
  Company Number: MX-B.I. PHARMACEUTICALS,INC./RIDGEFIELD-2013-BI-31574MX

PATIENT
  Age: 82 Year
  Sex: Female
  Weight: 60 kg

DRUGS (5)
  1. MICARDIS PLUS [Suspect]
     Indication: HYPERTENSION
     Dosage: STRENGTH: 80/12.5 MG
     Route: 048
     Dates: start: 201102, end: 20110801
  2. DIABETES TREATMENT [Concomitant]
     Indication: DIABETES MELLITUS
  3. DEPRESION TREATMENT [Concomitant]
     Indication: DEPRESSION
  4. PARACETAMOL [Concomitant]
     Indication: ARTHRALGIA
     Route: 048
  5. SILOPRIM [Concomitant]
     Indication: ARTHRALGIA

REACTIONS (3)
  - Pain in jaw [Recovered/Resolved]
  - Neuropathy peripheral [Unknown]
  - Depression [Unknown]
